FAERS Safety Report 20407511 (Version 2)
Quarter: 2022Q1

REPORT INFORMATION
  Report Type: Report from Study
  Country: ML (occurrence: ML)
  Receive Date: 20220131
  Receipt Date: 20220202
  Transmission Date: 20220423
  Serious: Yes (Hospitalization, Other)
  Sender: FDA-Public Use
  Company Number: ML-PFIZER INC-202200127638

PATIENT
  Sex: Female

DRUGS (2)
  1. AZITHROMYCIN ANHYDROUS [Suspect]
     Active Substance: AZITHROMYCIN ANHYDROUS
     Indication: Prophylaxis
     Dosage: 50 ML, SINGLE
     Dates: start: 20220118, end: 20220118
  2. PLACEBO [Suspect]
     Active Substance: UNSPECIFIED INGREDIENT
     Indication: Prophylaxis
     Dosage: 50 ML, SINGLE
     Dates: start: 20220118, end: 20220118

REACTIONS (2)
  - Maternal exposure during pregnancy [Recovering/Resolving]
  - Uterine rupture [Recovering/Resolving]

NARRATIVE: CASE EVENT DATE: 20220118
